FAERS Safety Report 17334675 (Version 1)
Quarter: 2020Q1

REPORT INFORMATION
  Report Type: Spontaneous
  Country: US (occurrence: US)
  Receive Date: 20200128
  Receipt Date: 20200128
  Transmission Date: 20200409
  Serious: Yes (Death, Other)
  Sender: FDA-Public Use
  Company Number: US-CHEPLA-C20200439_02

PATIENT
  Age: 69 Year
  Sex: Female

DRUGS (1)
  1. DA-EPOCH-R [Suspect]
     Active Substance: CYCLOPHOSPHAMIDE\DOXORUBICIN\ETOPOSIDE\PREDNISONE\RITUXIMAB\VINCRISTINE
     Indication: ACUTE LYMPHOCYTIC LEUKAEMIA

REACTIONS (3)
  - Malignant neoplasm progression [Unknown]
  - Death [Fatal]
  - Product use in unapproved indication [Unknown]
